FAERS Safety Report 18566705 (Version 1)
Quarter: 2020Q4

REPORT INFORMATION
  Report Type: Spontaneous
  Country: PT (occurrence: PT)
  Receive Date: 20201201
  Receipt Date: 20201201
  Transmission Date: 20210114
  Serious: Yes (Other)
  Sender: FDA-Public Use
  Company Number: PT-GILEAD-2020-0506300

PATIENT
  Age: 47 Year
  Sex: Female

DRUGS (1)
  1. DESCOVY [Suspect]
     Active Substance: EMTRICITABINE\TENOFOVIR ALAFENAMIDE FUMARATE
     Indication: HIV INFECTION
     Dosage: UNK UNK, QD
     Route: 048
     Dates: start: 20200910, end: 20200921

REACTIONS (6)
  - Gait disturbance [Recovered/Resolved]
  - Gastrooesophageal reflux disease [Recovered/Resolved]
  - Fatigue [Recovered/Resolved]
  - Muscle spasms [Recovered/Resolved]
  - Myalgia [Recovered/Resolved]
  - Nausea [Recovered/Resolved]

NARRATIVE: CASE EVENT DATE: 20200910
